FAERS Safety Report 10754605 (Version 3)
Quarter: 2015Q2

REPORT INFORMATION
  Report Type: Spontaneous
  Country: VE (occurrence: VE)
  Receive Date: 20150202
  Receipt Date: 20150423
  Transmission Date: 20150821
  Serious: Yes (Hospitalization, Other)
  Sender: FDA-Public Use
  Company Number: VE-BAYER-2015-013207

PATIENT
  Age: 56 Year
  Sex: Male

DRUGS (1)
  1. NEXAVAR [Suspect]
     Active Substance: SORAFENIB
     Indication: HEPATOCELLULAR CARCINOMA
     Dosage: 400 MG, BID
     Route: 048
     Dates: start: 201406, end: 201412

REACTIONS (9)
  - Pulmonary sepsis [None]
  - Leukoencephalopathy [None]
  - Type 2 diabetes mellitus [Not Recovered/Not Resolved]
  - Neuropathy peripheral [Not Recovered/Not Resolved]
  - Metastases to peritoneum [None]
  - Visual field defect [Not Recovered/Not Resolved]
  - Vision blurred [Not Recovered/Not Resolved]
  - Cerebral ischaemia [None]
  - Hepatocellular carcinoma [None]

NARRATIVE: CASE EVENT DATE: 20141228
